FAERS Safety Report 22305365 (Version 13)
Quarter: 2025Q2

REPORT INFORMATION
  Report Type: Spontaneous
  Country: US (occurrence: US)
  Receive Date: 20230510
  Receipt Date: 20250403
  Transmission Date: 20250717
  Serious: No
  Sender: PFIZER
  Company Number: US-PFIZER INC-PV202300080304

PATIENT
  Age: 71 Year
  Sex: Female
  Weight: 56.689 kg

DRUGS (4)
  1. IBRANCE [Suspect]
     Active Substance: PALBOCICLIB
     Indication: Breast cancer female
     Route: 048
  2. IBRANCE [Suspect]
     Active Substance: PALBOCICLIB
     Route: 048
  3. TRELEGY ELLIPTA [Concomitant]
     Active Substance: FLUTICASONE FUROATE\UMECLIDINIUM BROMIDE\VILANTEROL TRIFENATATE
  4. LETROZOLE [Concomitant]
     Active Substance: LETROZOLE

REACTIONS (11)
  - Pruritus [Unknown]
  - Illness [Unknown]
  - Feeling abnormal [Unknown]
  - Weight decreased [Unknown]
  - Depressed mood [Unknown]
  - Fatigue [Unknown]
  - Alopecia [Not Recovered/Not Resolved]
  - Decreased appetite [Unknown]
  - Nausea [Unknown]
  - Madarosis [Unknown]
  - Therapeutic response unexpected [Unknown]
